FAERS Safety Report 8006407-8 (Version None)
Quarter: 2011Q4

REPORT INFORMATION
  Report Type: 
  Country: None (occurrence: None)
  Receive Date: 20111226
  Receipt Date: 20111215
  Transmission Date: 20120403
  Serious: Yes (Hospitalization, Other)
  Sender: FDA-Public Use
  Company Number: US-ACTELION-A-US2011-58531

PATIENT

DRUGS (1)
  1. TRACLEER [Suspect]
     Indication: PULMONARY ARTERIAL HYPERTENSION
     Dosage: UNK
     Route: 048
     Dates: start: 20100929

REACTIONS (6)
  - SARCOIDOSIS [None]
  - SYNCOPE [None]
  - OXYGEN CONSUMPTION DECREASED [None]
  - PNEUMONIA [None]
  - CONDITION AGGRAVATED [None]
  - STRESS [None]
